FAERS Safety Report 5155076-3 (Version None)
Quarter: 2006Q4

REPORT INFORMATION
  Report Type: 
  Country: None (occurrence: None)
  Receive Date: 20061121
  Receipt Date: 20061120
  Transmission Date: 20070319
  Serious: Yes (Other)
  Sender: FDA-Public Use
  Company Number: US-GLAXOSMITHKLINE-A0628022A

PATIENT

DRUGS (1)
  1. AVANDARYL [Suspect]

REACTIONS (1)
  - PLEURAL EFFUSION [None]
